FAERS Safety Report 8991092 (Version 1)
Quarter: 2012Q4

REPORT INFORMATION
  Report Type: Spontaneous
  Country: US (occurrence: None)
  Receive Date: 20121227
  Receipt Date: 20121227
  Transmission Date: 20130627
  Serious: Yes (Other)
  Sender: FDA-Public Use
  Company Number: None

PATIENT
  Age: 48 Year
  Sex: Female

DRUGS (1)
  1. NALTREXONE [Suspect]
     Indication: ALCOHOLISM
     Route: 048
     Dates: start: 20121110, end: 20121115

REACTIONS (1)
  - Abdominal pain upper [None]
